FAERS Safety Report 21889948 (Version 1)
Quarter: 2023Q1

REPORT INFORMATION
  Report Type: Spontaneous
  Country: BR (occurrence: BR)
  Receive Date: 20230120
  Receipt Date: 20230120
  Transmission Date: 20230418
  Serious: Yes (Other)
  Sender: FDA-Public Use
  Company Number: BR-drreddys-LIT/BRA/23/0160219

PATIENT
  Age: 67 Year
  Sex: Male

DRUGS (4)
  1. AZACITIDINE [Suspect]
     Active Substance: AZACITIDINE
     Indication: Acute myeloid leukaemia
     Dosage: FOR 7 DAYS ON 10/2020
     Dates: start: 202010
  2. VENETOCLAX [Suspect]
     Active Substance: VENETOCLAX
     Indication: Acute myeloid leukaemia
     Dosage: WITH RAMP-UP (100MG-400MG)
  3. VENETOCLAX [Suspect]
     Active Substance: VENETOCLAX
     Dosage: REDUCED TO 200MG OR BREAKS WERE TAKEN IN BETWEEN CYCLES
  4. CYTARABINE [Concomitant]
     Active Substance: CYTARABINE
     Indication: Acute myeloid leukaemia

REACTIONS (2)
  - Myelosuppression [Recovering/Resolving]
  - Minimal residual disease [Recovering/Resolving]
